FAERS Safety Report 23614180 (Version 1)
Quarter: 2024Q1

REPORT INFORMATION
  Report Type: Report from Study
  Country: FR (occurrence: FR)
  Receive Date: 20240310
  Receipt Date: 20240310
  Transmission Date: 20240410
  Serious: Yes (Other)
  Sender: FDA-Public Use
  Company Number: FR-JNJFOC-20161218627

PATIENT
  Age: 74 Year
  Sex: Male

DRUGS (5)
  1. IMBRUVICA [Suspect]
     Active Substance: IBRUTINIB
     Indication: Chronic lymphocytic leukaemia
     Route: 048
  2. IMBRUVICA [Suspect]
     Active Substance: IBRUTINIB
     Indication: Chronic lymphocytic leukaemia
     Dosage: LAST ADMIN DATE JUL 2016
     Route: 048
     Dates: start: 20160712
  3. IMBRUVICA [Suspect]
     Active Substance: IBRUTINIB
     Indication: Chronic lymphocytic leukaemia
     Route: 048
     Dates: start: 20160713, end: 20190723
  4. IMBRUVICA [Suspect]
     Active Substance: IBRUTINIB
     Indication: Chronic lymphocytic leukaemia
     Route: 048
     Dates: start: 20190701, end: 20190731
  5. HEPARIN [Concomitant]
     Active Substance: HEPARIN SODIUM
     Indication: Product used for unknown indication

REACTIONS (17)
  - Obstruction gastric [Not Recovered/Not Resolved]
  - Skin fissures [Recovered/Resolved]
  - Swelling face [Recovered/Resolved]
  - Onycholysis [Recovered/Resolved]
  - Lung disorder [Recovered/Resolved]
  - Mixed anxiety and depressive disorder [Not Recovered/Not Resolved]
  - Cognitive disorder [Not Recovered/Not Resolved]
  - Purpura [Recovered/Resolved]
  - Asthenia [Recovered/Resolved]
  - Rash [Recovered/Resolved]
  - Atrial flutter [Recovering/Resolving]
  - Lymphocyte count increased [Recovered/Resolved]
  - Ecchymosis [Recovered/Resolved]
  - Oedema peripheral [Recovered/Resolved]
  - Pustule [Recovered/Resolved]
  - Onychoclasis [Recovered/Resolved]
  - Diarrhoea [Recovered/Resolved]

NARRATIVE: CASE EVENT DATE: 20160730
